FAERS Safety Report 6113001-2 (Version None)
Quarter: 2009Q1

REPORT INFORMATION
  Report Type: 
  Country: None (occurrence: None)
  Receive Date: 20090312
  Receipt Date: 20090310
  Transmission Date: 20090719
  Serious: No
  Sender: FDA-Public Use
  Company Number: A0771693A

PATIENT
  Age: 75 Year
  Sex: Male
  Weight: 104 kg

DRUGS (2)
  1. LAPATINIB [Suspect]
     Dosage: 1250MG PER DAY
     Route: 048
     Dates: start: 20081229
  2. CAPECITABINE [Suspect]
     Dosage: 1000MGM2 TWICE PER DAY
     Route: 048
     Dates: start: 20081229

REACTIONS (2)
  - PAIN IN EXTREMITY [None]
  - PARONYCHIA [None]
